FAERS Safety Report 8968402 (Version 1)
Quarter: 2012Q4

REPORT INFORMATION
  Report Type: 
  Country: US (occurrence: US)
  Receive Date: 20121218
  Receipt Date: 20121218
  Transmission Date: 20130627
  Serious: No
  Sender: FDA-Public Use
  Company Number: US-BRISTOL-MYERS SQUIBB COMPANY-16779456

PATIENT
  Age: 51 Year
  Sex: Female
  Weight: 136.05 kg

DRUGS (3)
  1. ABILIFY [Suspect]
     Indication: MAJOR DEPRESSION
     Dosage: Decreased to 5mg
  2. SEROQUEL [Suspect]
     Indication: MAJOR DEPRESSION
  3. PRISTIQ [Suspect]
     Indication: MAJOR DEPRESSION

REACTIONS (1)
  - Oedema peripheral [Unknown]
